FAERS Safety Report 6237854-2 (Version None)
Quarter: 2009Q2

REPORT INFORMATION
  Report Type: 
  Country: None (occurrence: None)
  Receive Date: 20090617
  Receipt Date: 20090603
  Transmission Date: 20091009
  Serious: Yes (Life-Threatening, Hospitalization, Other)
  Sender: FDA-Public Use
  Company Number: 2009RR-24804

PATIENT
  Age: 68 Year
  Sex: Male

DRUGS (11)
  1. AMOXICILLIN AND CLAVULANATE POTASSIUM [Suspect]
     Indication: CHRONIC OBSTRUCTIVE PULMONARY DISEASE
     Dosage: 375 MG, TID, ORAL
     Route: 048
     Dates: start: 20090402, end: 20090416
  2. ALENDRONATE SODIUM [Suspect]
  3. APS CALCIUM AND ERGOCALCIFEROL (CALCIUM LACTATE, CALCIUM PHOSPHATE, ER [Concomitant]
  4. ATROVENT [Concomitant]
  5. BUMETANIDE [Concomitant]
  6. CODEINE SUL TAB [Concomitant]
  7. FELODIPINE [Concomitant]
  8. ACETAMINOPHEN [Concomitant]
  9. PREDNISOLONE [Concomitant]
  10. ALBUTEROL [Concomitant]
  11. SERETIDE (SALMETEROL, FLUTICASONE PROPIONATE) [Suspect]

REACTIONS (2)
  - HEPATITIS ACUTE [None]
  - HEPATITIS CHOLESTATIC [None]
